FAERS Safety Report 8924691 (Version 1)
Quarter: 2012Q4

REPORT INFORMATION
  Report Type: 
  Country: GB (occurrence: GB)
  Receive Date: 20121126
  Receipt Date: 20121126
  Transmission Date: 20130627
  Serious: Yes (Hospitalization)
  Sender: FDA-Public Use
  Company Number: GB-ASTRAZENECA-2012SE87448

PATIENT
  Age: 28489 Day
  Sex: Female
  Weight: 80 kg

DRUGS (2)
  1. TICAGRELOR [Suspect]
     Indication: ANTIPLATELET THERAPY
     Route: 048
     Dates: start: 20111021
  2. TICAGRELOR [Suspect]
     Indication: ANTIPLATELET THERAPY
     Route: 048

REACTIONS (1)
  - Atrial fibrillation [Recovering/Resolving]
